FAERS Safety Report 7292973-7 (Version None)
Quarter: 2011Q1

REPORT INFORMATION
  Report Type: 
  Country: None (occurrence: None)
  Receive Date: 20110204
  Receipt Date: 20110118
  Transmission Date: 20110831
  Serious: Yes (Other)
  Sender: FDA-Public Use
  Company Number: TPA2010A05062

PATIENT
  Age: 74 Year
  Sex: Male

DRUGS (11)
  1. COZAAR [Concomitant]
  2. ACTOS [Suspect]
     Indication: DIABETES MELLITUS
     Dosage: (30 MG, 1 IN 1 D, PER ORAL) (30 MG, 1 IN 1 D, PER ORAL)
     Route: 048
     Dates: start: 20051001, end: 20051227
  3. ACTOS [Suspect]
     Indication: DIABETES MELLITUS
     Dosage: (30 MG, 1 IN 1 D, PER ORAL) (30 MG, 1 IN 1 D, PER ORAL)
     Route: 048
     Dates: start: 20060101, end: 20100701
  4. ASPIRIN [Concomitant]
  5. ZETIA [Concomitant]
  6. OMEGA 3 FISH OIL (FISH OIL) [Concomitant]
  7. ALLEGRA (FEXODENADINE HYDROCHLORIDE) [Concomitant]
  8. METFORMIN HCL [Concomitant]
  9. ZOCOR [Concomitant]
  10. LIPITOR [Concomitant]
  11. AVAPRO [Concomitant]

REACTIONS (8)
  - MUSCULOSKELETAL CHEST PAIN [None]
  - CHRONIC OBSTRUCTIVE PULMONARY DISEASE [None]
  - URINARY TRACT INFECTION [None]
  - FALL [None]
  - SURGERY [None]
  - BLADDER TRANSITIONAL CELL CARCINOMA [None]
  - ECONOMIC PROBLEM [None]
  - WOUND INFECTION BACTERIAL [None]
